FAERS Safety Report 10861973 (Version 1)
Quarter: 2015Q1

REPORT INFORMATION
  Report Type: Spontaneous
  Country: FR (occurrence: FR)
  Receive Date: 20150224
  Receipt Date: 20150224
  Transmission Date: 20150721
  Serious: Yes (Other)
  Sender: FDA-Public Use
  Company Number: FR-CELGENE-056-FK228-12063269

PATIENT

DRUGS (5)
  1. VINCRISTINE [Concomitant]
     Active Substance: VINCRISTINE
     Indication: T-CELL LYMPHOMA
     Route: 065
  2. PREDNISONE. [Concomitant]
     Active Substance: PREDNISONE
     Indication: T-CELL LYMPHOMA
     Route: 065
  3. ROMIDEPSIN [Suspect]
     Active Substance: ROMIDEPSIN
     Indication: T-CELL LYMPHOMA
     Dosage: ESCALATING DOSES
     Route: 065
  4. DOXORUBICINE [Concomitant]
     Active Substance: DOXORUBICIN
     Indication: T-CELL LYMPHOMA
     Route: 065
  5. CYCLOPHOSPHAMIDE. [Concomitant]
     Active Substance: CYCLOPHOSPHAMIDE
     Indication: T-CELL LYMPHOMA
     Route: 065

REACTIONS (19)
  - Acute coronary syndrome [Unknown]
  - Thrombocytopenia [Unknown]
  - Electrocardiogram QT prolonged [Unknown]
  - Arrhythmia [Unknown]
  - Dyspepsia [Unknown]
  - Lung infection [Unknown]
  - Febrile neutropenia [Unknown]
  - Vomiting [Unknown]
  - Malaise [Unknown]
  - Myocardial infarction [Unknown]
  - General physical health deterioration [Unknown]
  - Neutropenia [Unknown]
  - Anaemia [Unknown]
  - Hepatic enzyme increased [Unknown]
  - Acute pulmonary oedema [Unknown]
  - T-cell lymphoma [Unknown]
  - Cardiac failure acute [Unknown]
  - Haematotoxicity [Unknown]
  - Deep vein thrombosis [Unknown]
